FAERS Safety Report 5088673-4 (Version None)
Quarter: 2006Q3

REPORT INFORMATION
  Report Type: 
  Country: None (occurrence: None)
  Receive Date: 20060822
  Receipt Date: 20060807
  Transmission Date: 20061208
  Serious: Yes (Hospitalization)
  Sender: FDA-Public Use
  Company Number: 2006SP002921

PATIENT
  Age: 63 Year
  Sex: Female
  Weight: 39.9165 kg

DRUGS (8)
  1. XOPENEX [Suspect]
     Indication: CHRONIC OBSTRUCTIVE PULMONARY DISEASE
     Dosage: 1.25 MG/3ML;Q6H; INHALATION
     Route: 055
     Dates: end: 20060805
  2. XOPENEX [Suspect]
     Indication: EMPHYSEMA
     Dosage: 1.25 MG/3ML;Q6H; INHALATION
     Route: 055
     Dates: end: 20060805
  3. ATROVENT [Suspect]
     Indication: EMPHYSEMA
     Dosage: INHALATION
     Route: 055
     Dates: start: 20060509, end: 20060701
  4. FORMOTEROL [Concomitant]
  5. PREDNISONE [Concomitant]
  6. THEOPHYLLINE [Concomitant]
  7. ATROVENT [Concomitant]
  8. TIOTROPIUM [Concomitant]

REACTIONS (6)
  - BRONCHITIS [None]
  - CHRONIC OBSTRUCTIVE PULMONARY DISEASE [None]
  - CONDITION AGGRAVATED [None]
  - PNEUMONIA [None]
  - POOR QUALITY DRUG ADMINISTERED [None]
  - RESPIRATORY FAILURE [None]
